FAERS Safety Report 17313241 (Version 4)
Quarter: 2020Q1

REPORT INFORMATION
  Report Type: Spontaneous
  Country: HU (occurrence: HU)
  Receive Date: 20200124
  Receipt Date: 20200317
  Transmission Date: 20200409
  Serious: Yes (Other)
  Sender: FDA-Public Use
  Company Number: HU-PFIZER INC-2020032258

PATIENT
  Sex: Male

DRUGS (3)
  1. PANTOPRAZOLE [Suspect]
     Active Substance: PANTOPRAZOLE
     Indication: STEROID THERAPY
     Dosage: UNK
     Route: 065
     Dates: start: 2013
  2. PANTOPRAZOLE [Suspect]
     Active Substance: PANTOPRAZOLE
     Indication: PROPHYLAXIS
     Dosage: UNK
     Route: 065
  3. PANTOPRAZOLE [Suspect]
     Active Substance: PANTOPRAZOLE
     Dosage: 20 MG, ALTERNATE DAY
     Route: 065

REACTIONS (6)
  - Wrong technique in product usage process [Unknown]
  - Drug dependence [Unknown]
  - Diarrhoea [Unknown]
  - Abdominal discomfort [Unknown]
  - Dyspepsia [Not Recovered/Not Resolved]
  - Cardiac disorder [Unknown]
